FAERS Safety Report 9645442 (Version 1)
Quarter: 2013Q4

REPORT INFORMATION
  Report Type: Spontaneous
  Country: DE (occurrence: DE)
  Receive Date: 20131025
  Receipt Date: 20131025
  Transmission Date: 20140711
  Serious: Yes (Other)
  Sender: FDA-Public Use
  Company Number: GXKR2013DE003363

PATIENT
  Age: 79 Year
  Sex: Male

DRUGS (1)
  1. AMLODIPINE BESYLATE SANDOZ [Suspect]
     Indication: HYPERTENSION
     Dosage: 5 MG, QD (0-1-0)
     Route: 048

REACTIONS (2)
  - Wheezing [Unknown]
  - Dyspnoea [Unknown]
